FAERS Safety Report 9517481 (Version 3)
Quarter: 2013Q4

REPORT INFORMATION
  Report Type: Spontaneous
  Country: JP (occurrence: JP)
  Receive Date: 20130911
  Receipt Date: 20131223
  Transmission Date: 20140711
  Serious: Yes (Other)
  Sender: FDA-Public Use
  Company Number: JP-MYLANLABS-2013S1019679

PATIENT
  Age: 82 Year
  Sex: Female

DRUGS (2)
  1. CARBOPLATIN [Suspect]
     Indication: OVARIAN CANCER
     Route: 041
     Dates: start: 20130619
  2. PACLITAXEL [Concomitant]
     Indication: OVARIAN CANCER
     Dosage: INJECTION
     Route: 042
     Dates: start: 20130619

REACTIONS (6)
  - Pleural effusion [Unknown]
  - Bone marrow failure [Recovered/Resolved]
  - Nausea [Recovered/Resolved]
  - Vomiting [Recovered/Resolved]
  - Alopecia [Recovering/Resolving]
  - Stomatitis [Recovered/Resolved]
